FAERS Safety Report 4996869-2 (Version None)
Quarter: 2006Q2

REPORT INFORMATION
  Report Type: 
  Country: None (occurrence: None)
  Receive Date: 20060505
  Receipt Date: 20060421
  Transmission Date: 20061013
  Serious: Yes (Hospitalization, Other)
  Sender: FDA-Public Use
  Company Number: 2006000921

PATIENT
  Age: 50 Year
  Sex: Female

DRUGS (11)
  1. TARCEVA [Suspect]
     Indication: NON-SMALL CELL LUNG CANCER
     Dosage: 150MG (QD), ORAL
     Route: 048
     Dates: start: 20060301, end: 20060424
  2. ATIVAN [Concomitant]
  3. VITAMINS [Concomitant]
  4. TRAMADOL HCL [Concomitant]
  5. PLAVIX [Concomitant]
  6. CELEXA [Concomitant]
  7. MEGACE [Concomitant]
  8. LIPITOR [Concomitant]
  9. RESTORIL [Concomitant]
  10. COLACE (DOCUSATE SODIUM) [Concomitant]
  11. PREVACID [Concomitant]

REACTIONS (9)
  - ASTHENIA [None]
  - CARDIAC TAMPONADE [None]
  - DEHYDRATION [None]
  - DISEASE PROGRESSION [None]
  - DYSPHAGIA [None]
  - FAILURE TO THRIVE [None]
  - MALIGNANT NEOPLASM PROGRESSION [None]
  - PERICARDIAL EFFUSION [None]
  - PLEURAL EFFUSION [None]
